FAERS Safety Report 7396045-2 (Version None)
Quarter: 2011Q2

REPORT INFORMATION
  Report Type: 
  Country: None (occurrence: None)
  Receive Date: 20110406
  Receipt Date: 20110323
  Transmission Date: 20111010
  Serious: Yes (Hospitalization)
  Sender: FDA-Public Use
  Company Number: US-JNJFOC-20110307401

PATIENT
  Sex: Female
  Weight: 47.63 kg

DRUGS (3)
  1. FENTANYL-100 [Suspect]
     Indication: INTERVERTEBRAL DISC COMPRESSION
     Route: 062
  2. FENTANYL-100 [Suspect]
     Indication: BACK PAIN
     Route: 062
  3. DURAGESIC-50 [Suspect]
     Indication: INTERVERTEBRAL DISC COMPRESSION
     Route: 062

REACTIONS (2)
  - HOSPITALISATION [None]
  - DRUG INEFFECTIVE [None]
